FAERS Safety Report 10395983 (Version 1)
Quarter: 2014Q3

REPORT INFORMATION
  Report Type: Spontaneous
  Country: CA (occurrence: None)
  Receive Date: 20140818
  Receipt Date: 20140818
  Transmission Date: 20150326
  Serious: Yes (Hospitalization)
  Sender: FDA-Public Use
  Company Number: 2014AP003905

PATIENT
  Age: 93 Year
  Sex: Male

DRUGS (10)
  1. APO-TELMISARTAN (TELMISARTAN) TABLET [Suspect]
     Active Substance: TELMISARTAN
     Indication: MYOCARDIAL INFARCTION
  2. TAMSULOSIN (TAMSULOSIN) [Concomitant]
     Active Substance: TAMSULOSIN
  3. ESCITALOPRAM [Suspect]
     Active Substance: ESCITALOPRAM OXALATE
     Indication: DEPRESSION
  4. APO-TELMISARTAN (TELMISARTAN) TABLET [Suspect]
     Active Substance: TELMISARTAN
     Indication: CORONARY ARTERY DISEASE
  5. LOPERAMIDE (LOPERAMIDE) [Concomitant]
     Active Substance: LOPERAMIDE
  6. PANTOPRAZOLE [Suspect]
     Active Substance: PANTOPRAZOLE SODIUM
     Indication: GASTROINTESTINAL HAEMORRHAGE
  7. APO-METOPROLOL (METOPROLOL) TABLET [Suspect]
     Active Substance: METOPROLOL
     Indication: MYOCARDIAL INFARCTION
  8. PREDNISONE (PREDNISONE) [Concomitant]
     Active Substance: PREDNISONE
  9. APO-METOPROLOL (METOPROLOL) TABLET [Suspect]
     Active Substance: METOPROLOL
     Indication: CORONARY ARTERY DISEASE
  10. APO-LORAZEPAM (LORAZEPAM) TABLET [Suspect]
     Active Substance: LORAZEPAM
     Indication: INSOMNIA

REACTIONS (8)
  - Somnolence [None]
  - Vitamin D deficiency [None]
  - Laceration [None]
  - Faecal incontinence [None]
  - Diarrhoea [None]
  - Orthostatic hypotension [None]
  - Hyponatraemia [None]
  - Fall [None]
